FAERS Safety Report 17468101 (Version 3)
Quarter: 2020Q2

REPORT INFORMATION
  Report Type: Spontaneous
  Country: SE (occurrence: SE)
  Receive Date: 20200227
  Receipt Date: 20200507
  Transmission Date: 20200713
  Serious: Yes (Hospitalization, Other)
  Sender: FDA-Public Use
  Company Number: SE-PFIZER INC-2020085827

PATIENT
  Age: 41 Year
  Sex: Male

DRUGS (6)
  1. QUETIAPINE. [Suspect]
     Active Substance: QUETIAPINE
     Dosage: UNK
     Dates: start: 201912, end: 201912
  2. STESOLID [Suspect]
     Active Substance: DIAZEPAM
     Dosage: UNK
     Dates: start: 201912, end: 201912
  3. PREGABALIN. [Suspect]
     Active Substance: PREGABALIN
     Dosage: UNK
     Dates: start: 201912, end: 201912
  4. THERALEN [Suspect]
     Active Substance: TRIMEPRAZINE
     Dosage: UNK
     Dates: start: 201912, end: 201912
  5. ANAFRANIL [Suspect]
     Active Substance: CLOMIPRAMINE HYDROCHLORIDE
     Dosage: UNK
     Dates: start: 201912, end: 201912
  6. PROPAVAN [Suspect]
     Active Substance: PROPIOMAZINE
     Dosage: UNK
     Dates: start: 201912, end: 201912

REACTIONS (6)
  - Pneumonia aspiration [Recovering/Resolving]
  - Toxicity to various agents [Recovering/Resolving]
  - Metabolic acidosis [Recovering/Resolving]
  - Intentional self-injury [Recovering/Resolving]
  - Wheezing [Recovering/Resolving]
  - Loss of consciousness [Recovering/Resolving]

NARRATIVE: CASE EVENT DATE: 201912
